FAERS Safety Report 9737480 (Version 3)
Quarter: 2014Q1

REPORT INFORMATION
  Report Type: Spontaneous
  Country: FR (occurrence: FR)
  Receive Date: 20131206
  Receipt Date: 20140114
  Transmission Date: 20141002
  Serious: Yes (Life-Threatening, Hospitalization, Disabling, Other)
  Sender: FDA-Public Use
  Company Number: FR-ALLERGAN-1316575US

PATIENT
  Age: 75 Year
  Sex: Male
  Weight: 69 kg

DRUGS (13)
  1. BOTOX [Suspect]
     Indication: MUSCLE SPASTICITY
     Dosage: 200 UNITS, SINGLE
     Dates: start: 20110830, end: 20110830
  2. BOTOX [Suspect]
     Dosage: 250 UNITS, SINGLE
     Dates: start: 20110524, end: 20110524
  3. BOTOX [Suspect]
     Dosage: 300 UNITS, SINGLE
     Dates: start: 20110222, end: 20110222
  4. BOTOX [Suspect]
     Dosage: 300 UNITS, SINGLE
     Dates: start: 20101130, end: 20101130
  5. TRANXENE [Concomitant]
     Indication: SLEEP DISORDER
     Dosage: 1 DF, QPM
  6. FLUDEX [Concomitant]
     Indication: HYPERTENSION
     Dosage: 1 UNK, UNK
  7. INEXIUM [Concomitant]
     Indication: PRODUCT USED FOR UNKNOWN INDICATION
     Dosage: UNK
  8. LIORESAL [Concomitant]
     Indication: MUSCLE SPASTICITY
     Dosage: 10 MG, TID
  9. LERCAN [Concomitant]
     Indication: HYPERTENSION
     Dosage: 10 OZ, QD
  10. COVERSYL [Concomitant]
     Indication: HYPERTENSION
     Dosage: 10 OZ, QAM
  11. SEROPLEX [Concomitant]
     Indication: DEPRESSION
     Dosage: UNK, BID
  12. PLAVIX [Concomitant]
     Indication: CEREBROVASCULAR ACCIDENT PROPHYLAXIS
  13. LEVEMIR [Concomitant]
     Indication: PRODUCT USED FOR UNKNOWN INDICATION

REACTIONS (4)
  - Acute respiratory distress syndrome [Recovered/Resolved with Sequelae]
  - Septic shock [Recovered/Resolved with Sequelae]
  - Pneumonia aspiration [Recovered/Resolved with Sequelae]
  - Fall [Recovered/Resolved]
